FAERS Safety Report 10359490 (Version 1)
Quarter: 2014Q3

REPORT INFORMATION
  Report Type: Spontaneous
  Country: US (occurrence: None)
  Receive Date: 20140801
  Receipt Date: 20140801
  Transmission Date: 20150326
  Serious: Yes (Other)
  Sender: FDA-Public Use
  Company Number: None

PATIENT
  Age: 62 Year
  Sex: Female
  Weight: 62.6 kg

DRUGS (1)
  1. DULOXETINE HCL [Suspect]
     Active Substance: DULOXETINE HYDROCHLORIDE
     Indication: DEPRESSION
     Dosage: ONE CAPSULE ONCE DAILY TAKEN BY MOUTH
     Route: 048

REACTIONS (6)
  - Product substitution issue [None]
  - Discomfort [None]
  - Depression [None]
  - Disturbance in attention [None]
  - Confusional state [None]
  - Head discomfort [None]

NARRATIVE: CASE EVENT DATE: 20140619
